FAERS Safety Report 14706101 (Version 3)
Quarter: 2020Q3

REPORT INFORMATION
  Report Type: Report from Study
  Country: US (occurrence: US)
  Receive Date: 20180402
  Receipt Date: 20190226
  Transmission Date: 20201104
  Serious: Yes (Life-Threatening, Hospitalization)
  Sender: FDA-Public Use
  Company Number: US-ASTRAZENECA-2018SE39936

PATIENT
  Age: 850 Month
  Sex: Female
  Weight: 66.6 kg

DRUGS (4)
  1. CEDIRANIB. [Suspect]
     Active Substance: CEDIRANIB
     Indication: SMALL CELL LUNG CANCER
     Route: 048
     Dates: start: 20171208, end: 20180103
  2. OLAPARIB. [Suspect]
     Active Substance: OLAPARIB
     Indication: SMALL CELL LUNG CANCER
     Route: 048
     Dates: start: 20171208, end: 20180103
  3. CEDIRANIB. [Suspect]
     Active Substance: CEDIRANIB
     Indication: SMALL CELL LUNG CANCER
     Route: 048
     Dates: start: 20170825, end: 20170928
  4. OLAPARIB. [Suspect]
     Active Substance: OLAPARIB
     Indication: SMALL CELL LUNG CANCER
     Route: 048
     Dates: start: 20170828, end: 20170928

REACTIONS (5)
  - Decreased appetite [Unknown]
  - Fatigue [Unknown]
  - Weight decreased [Not Recovered/Not Resolved]
  - Lymphocyte count decreased [Not Recovered/Not Resolved]
  - Hypokalaemia [Recovering/Resolving]

NARRATIVE: CASE EVENT DATE: 20170929
